FAERS Safety Report 10047143 (Version 1)
Quarter: 2014Q1

REPORT INFORMATION
  Report Type: Spontaneous
  Country: US (occurrence: US)
  Receive Date: 20140331
  Receipt Date: 20140331
  Transmission Date: 20141002
  Serious: No
  Sender: FDA-Public Use
  Company Number: US-MYLANLABS-2013S1011963

PATIENT
  Age: 38 Year
  Sex: Female

DRUGS (6)
  1. FENTANYL TRANSDERMAL SYSTEM [Suspect]
     Indication: BACK PAIN
     Dosage: CHANGED Q72H
     Route: 062
     Dates: start: 2011
  2. GABAPENTIN [Concomitant]
     Route: 048
     Dates: start: 2011
  3. TIZANIDINE [Concomitant]
     Route: 048
     Dates: start: 2011
  4. DIAZEPAM [Concomitant]
     Route: 048
     Dates: start: 2011
  5. CYMBALTA [Concomitant]
     Route: 048
     Dates: start: 2011
  6. CELEBREX [Concomitant]
     Route: 048
     Dates: start: 2011

REACTIONS (1)
  - Drug screen negative [Not Recovered/Not Resolved]
